FAERS Safety Report 5296901-5 (Version None)
Quarter: 2007Q2

REPORT INFORMATION
  Report Type: 
  Country: None (occurrence: None)
  Receive Date: 20070413
  Receipt Date: 20070404
  Transmission Date: 20071010
  Serious: Yes (Other)
  Sender: FDA-Public Use
  Company Number: GB-PFIZER INC-2007027208

PATIENT
  Age: 75 Year
  Sex: Male

DRUGS (4)
  1. GABAPENTIN [Suspect]
     Indication: NEURALGIA
  2. CARBIDOPA [Concomitant]
  3. ENTACAPONE [Concomitant]
     Indication: PARKINSON'S DISEASE
  4. LEVODOPA [Concomitant]

REACTIONS (1)
  - DYSKINESIA [None]
